FAERS Safety Report 5291642-2 (Version None)
Quarter: 2007Q2

REPORT INFORMATION
  Report Type: 
  Country: None (occurrence: None)
  Receive Date: 20070410
  Receipt Date: 20070403
  Transmission Date: 20071010
  Serious: Yes (Death, Hospitalization)
  Sender: FDA-Public Use
  Company Number: FR-JNJFOC-20070400743

PATIENT
  Age: 81 Year
  Sex: Female

DRUGS (7)
  1. OFLOCET [Suspect]
     Indication: URINARY TRACT INFECTION
     Route: 048
     Dates: start: 20070116, end: 20070125
  2. CARDENSIOL [Concomitant]
     Route: 048
  3. ACTONEL [Concomitant]
     Route: 048
  4. STILNOX [Concomitant]
     Route: 048
  5. PREVISCAN [Concomitant]
     Route: 048
  6. LASIX [Concomitant]
     Route: 048
  7. ALLOPURINOL [Concomitant]
     Route: 065

REACTIONS (4)
  - AGRANULOCYTOSIS [None]
  - GASTRITIS [None]
  - MOUTH ULCERATION [None]
  - NEUTROPENIA [None]
